FAERS Safety Report 8773423 (Version 5)
Quarter: 2014Q3

REPORT INFORMATION
  Report Type: Spontaneous
  Country: US (occurrence: US)
  Receive Date: 20120907
  Receipt Date: 20140723
  Transmission Date: 20150326
  Serious: No
  Sender: FDA-Public Use
  Company Number: US-009507513-1209USA000780

PATIENT
  Sex: Male

DRUGS (4)
  1. PROPECIA [Suspect]
     Active Substance: FINASTERIDE
     Dosage: 1 MG, QD
     Route: 048
     Dates: start: 20021226, end: 20031004
  2. PROPECIA [Suspect]
     Active Substance: FINASTERIDE
     Dosage: 1 MG, QD
     Route: 048
     Dates: start: 20031110, end: 20040517
  3. PROPECIA [Suspect]
     Active Substance: FINASTERIDE
     Indication: ALOPECIA
     Dosage: 1 MG, QD
     Route: 048
     Dates: start: 1999, end: 2002
  4. PROPECIA [Suspect]
     Active Substance: FINASTERIDE
     Dosage: 1 MG, QD
     Route: 048
     Dates: start: 20020305, end: 20021125

REACTIONS (15)
  - Anxiety [Not Recovered/Not Resolved]
  - Fatigue [Unknown]
  - Urinary tract infection [Unknown]
  - Sexual dysfunction [Not Recovered/Not Resolved]
  - Visual impairment [Unknown]
  - Dyspareunia [Unknown]
  - Nocturia [Unknown]
  - Urinary retention [Unknown]
  - Depression [Not Recovered/Not Resolved]
  - Myofascitis [Unknown]
  - Cognitive disorder [Unknown]
  - Prostate infection [Unknown]
  - Dysuria [Unknown]
  - Prostatitis [Not Recovered/Not Resolved]
  - Erectile dysfunction [Not Recovered/Not Resolved]

NARRATIVE: CASE EVENT DATE: 2006
